FAERS Safety Report 5031343-9 (Version None)
Quarter: 2006Q2

REPORT INFORMATION
  Report Type: 
  Country: None (occurrence: None)
  Receive Date: 20060616
  Receipt Date: 20060529
  Transmission Date: 20061013
  Serious: Yes (Hospitalization)
  Sender: FDA-Public Use
  Company Number: CY200605000083

PATIENT
  Age: 80 Year
  Sex: Female

DRUGS (7)
  1. TERIPARATIDE (TERIPARATIDE) PEN, DISPOSABLE [Suspect]
     Dates: start: 20060130, end: 20060428
  2. FORTEO [Concomitant]
  3. ISOPTIN /GFR/(VERAPAMIL HYDROCHLORIDE) [Concomitant]
  4. ATENOLOL [Concomitant]
  5. CORTISONE ACETATE [Concomitant]
  6. TEVETEN /UNK/ (EPROSARTAN) [Concomitant]
  7. BROMAZEPAM (BROMAZEPAM) [Concomitant]

REACTIONS (5)
  - CONSTIPATION [None]
  - FATIGUE [None]
  - HAEMORRHOIDS [None]
  - HEART RATE DECREASED [None]
  - HYPOTENSION [None]
